FAERS Safety Report 14032338 (Version 2)
Quarter: 2017Q4

REPORT INFORMATION
  Report Type: Spontaneous
  Country: US (occurrence: US)
  Receive Date: 20171002
  Receipt Date: 20171222
  Transmission Date: 20180321
  Serious: No
  Sender: FDA-Public Use
  Company Number: US-PFIZER INC-2017423148

PATIENT
  Age: 53 Year
  Sex: Male
  Weight: 121.1 kg

DRUGS (2)
  1. REVATIO [Suspect]
     Active Substance: SILDENAFIL CITRATE
     Indication: ERECTILE DYSFUNCTION
     Dosage: 20 MG, 3X/DAY
     Route: 048
     Dates: start: 201702
  2. REVATIO [Suspect]
     Active Substance: SILDENAFIL CITRATE
     Indication: IMMUNE ENHANCEMENT THERAPY

REACTIONS (1)
  - Drug ineffective for unapproved indication [Unknown]
